FAERS Safety Report 8501833-2 (Version None)
Quarter: 2012Q3

REPORT INFORMATION
  Report Type: 
  Country: None (occurrence: None)
  Receive Date: 20120711
  Receipt Date: 20120627
  Transmission Date: 20120928
  Serious: Yes (Hospitalization, Disabling, Other)
  Sender: FDA-Public Use
  Company Number: IT-JNJFOC-20100701638

PATIENT
  Age: 72 Year
  Sex: Female
  Weight: 58 kg

DRUGS (4)
  1. REMICADE [Suspect]
     Route: 042
     Dates: start: 20080619
  2. REMICADE [Suspect]
     Indication: COLITIS ULCERATIVE
     Route: 042
     Dates: start: 20081001
  3. REMICADE [Suspect]
     Route: 042
     Dates: start: 20080701
  4. REMICADE [Suspect]
     Route: 042
     Dates: start: 20081201, end: 20081219

REACTIONS (2)
  - CATARACT [None]
  - ENDOPHTHALMITIS [None]
